FAERS Safety Report 17674412 (Version 1)
Quarter: 2020Q2

REPORT INFORMATION
  Report Type: Spontaneous
  Country: US (occurrence: US)
  Receive Date: 20200415
  Receipt Date: 20200415
  Transmission Date: 20200714
  Serious: No
  Sender: FDA-Public Use
  Company Number: None

PATIENT
  Age: 67 Year
  Sex: Male

DRUGS (1)
  1. SUTENT [Suspect]
     Active Substance: SUNITINIB MALATE
     Route: 046
     Dates: start: 20200309

REACTIONS (4)
  - Blood pressure increased [None]
  - Skin exfoliation [None]
  - Stomatitis [None]
  - Somnolence [None]

NARRATIVE: CASE EVENT DATE: 20200415
